FAERS Safety Report 12269678 (Version 2)
Quarter: 2016Q2

REPORT INFORMATION
  Report Type: Report from Study
  Country: US (occurrence: US)
  Receive Date: 20160414
  Receipt Date: 20160527
  Transmission Date: 20160815
  Serious: Yes (Other)
  Sender: FDA-Public Use
  Company Number: US-BIOGEN-2016BI00219011

PATIENT
  Sex: Female

DRUGS (1)
  1. TECFIDERA [Suspect]
     Active Substance: DIMETHYL FUMARATE
     Indication: MULTIPLE SCLEROSIS
     Dosage: MAINTENANCE DOSE
     Route: 048
     Dates: start: 20140220

REACTIONS (6)
  - Seizure [Unknown]
  - Neck pain [Unknown]
  - Head injury [Unknown]
  - Memory impairment [Unknown]
  - Anaemia [Unknown]
  - Drug dose omission [Unknown]
